FAERS Safety Report 9667454 (Version 2)
Quarter: 2013Q4

REPORT INFORMATION
  Report Type: Spontaneous
  Country: US (occurrence: US)
  Receive Date: 20131101
  Receipt Date: 20131119
  Transmission Date: 20140711
  Serious: No
  Sender: FDA-Public Use
  Company Number: US-ORACLE-2011S1000034

PATIENT
  Age: 53 Year
  Sex: Male
  Weight: 113.4 kg

DRUGS (17)
  1. KRYSTEXXA INJECTION [Suspect]
     Indication: GOUTY TOPHUS
     Dates: start: 20110328, end: 20110328
  2. KRYSTEXXA INJECTION [Suspect]
     Indication: GOUTY TOPHUS
     Dates: start: 20110414, end: 20110414
  3. KRYSTEXXA INJECTION [Suspect]
     Indication: GOUTY TOPHUS
     Dates: start: 20110427, end: 20110427
  4. KRYSTEXXA INJECTION [Suspect]
     Indication: GOUTY TOPHUS
     Dates: start: 20110511, end: 20110511
  5. KRYSTEXXA INJECTION [Suspect]
     Indication: GOUTY TOPHUS
     Dates: start: 201105, end: 201105
  6. KRYSTEXXA INJECTION [Suspect]
     Indication: GOUTY TOPHUS
     Dates: start: 201106, end: 201106
  7. KRYSTEXXA INJECTION [Suspect]
     Indication: GOUTY TOPHUS
     Dates: start: 20110621
  8. COLCHICINE [Concomitant]
     Indication: GOUT
  9. INDOCIN /00003801/ [Concomitant]
     Indication: GOUT
  10. METHYLPRED [Concomitant]
     Indication: GOUT
  11. HYDROCODONE [Concomitant]
     Indication: PAIN
  12. STEROID [Concomitant]
     Indication: PROPHYLAXIS
     Route: 042
     Dates: start: 20110328, end: 20110328
  13. STEROID [Concomitant]
     Indication: PROPHYLAXIS
     Route: 042
     Dates: start: 20110414, end: 20110414
  14. STEROID [Concomitant]
     Indication: PROPHYLAXIS
     Route: 042
     Dates: start: 20110427, end: 20110427
  15. BENADRYL /00000402/ [Concomitant]
     Indication: PROPHYLAXIS
     Route: 042
     Dates: start: 20110328, end: 20110328
  16. BENADRYL /00000402/ [Concomitant]
     Indication: PROPHYLAXIS
     Route: 042
     Dates: start: 20110414, end: 20110414
  17. BENADRYL /00000402/ [Concomitant]
     Indication: PROPHYLAXIS
     Route: 042
     Dates: start: 20110427, end: 20110427

REACTIONS (3)
  - Back pain [Recovered/Resolved]
  - Dyspepsia [Not Recovered/Not Resolved]
  - Arthralgia [Not Recovered/Not Resolved]
